FAERS Safety Report 17654823 (Version 1)
Quarter: 2020Q2

REPORT INFORMATION
  Report Type: Spontaneous
  Country: GB (occurrence: GB)
  Receive Date: 20200410
  Receipt Date: 20200410
  Transmission Date: 20200713
  Serious: Yes (Other)
  Sender: FDA-Public Use
  Company Number: GB-COLGATE PALMOLIVE COMPANY-20200400619

PATIENT

DRUGS (2)
  1. TEICOPLANIN [Suspect]
     Active Substance: TEICOPLANIN
     Dosage: 400 MILLIGRAM
     Route: 042
  2. CHLORHEXIDINE GLUCONATE UNSPECIFIED [Suspect]
     Active Substance: CHLORHEXIDINE GLUCONATE

REACTIONS (2)
  - Anaphylactic reaction [Recovered/Resolved]
  - Maternal exposure during delivery [Unknown]
